FAERS Safety Report 23383692 (Version 5)
Quarter: 2025Q3

REPORT INFORMATION
  Report Type: Report from Study
  Country: CA (occurrence: CA)
  Receive Date: 20240109
  Receipt Date: 20250829
  Transmission Date: 20251021
  Serious: Yes (Other)
  Sender: TAKEDA
  Company Number: CA-TAKEDA-2023TUS067390

PATIENT
  Sex: Female

DRUGS (24)
  1. LANADELUMAB [Suspect]
     Active Substance: LANADELUMAB
     Indication: Hereditary angioedema with C1 esterase inhibitor deficiency
     Dosage: 2 DOSAGE FORM, Q2WEEKS
     Dates: start: 20230105
  2. LANADELUMAB [Suspect]
     Active Substance: LANADELUMAB
     Dosage: UNK UNK, Q2WEEKS
  3. LANADELUMAB [Suspect]
     Active Substance: LANADELUMAB
     Dosage: UNK UNK, Q2WEEKS
  4. IRBESARTAN [Concomitant]
     Active Substance: IRBESARTAN
  5. MOMETASONE [Concomitant]
     Active Substance: MOMETASONE
  6. TYLENOL EXTRA STRENGTH [Concomitant]
     Active Substance: ACETAMINOPHEN
  7. DESLORATADINE [Concomitant]
     Active Substance: DESLORATADINE
  8. HYDROCHLOROTHIAZIDE [Concomitant]
     Active Substance: HYDROCHLOROTHIAZIDE
  9. FERROUS SULFATE [Concomitant]
     Active Substance: FERROUS SULFATE
  10. RIZATRIPTAN [Concomitant]
     Active Substance: RIZATRIPTAN
  11. TRANDATE [Concomitant]
     Active Substance: LABETALOL HYDROCHLORIDE
  12. PRAMIPEXOLE [Concomitant]
     Active Substance: PRAMIPEXOLE
  13. BUPROPION [Concomitant]
     Active Substance: BUPROPION
  14. Jamp pregabalin [Concomitant]
  15. VAGIFEM [Concomitant]
     Active Substance: ESTRADIOL
  16. NEXIUM [Concomitant]
     Active Substance: ESOMEPRAZOLE MAGNESIUM
  17. Priva celecoxib [Concomitant]
  18. CHOLESTYRAMINE [Concomitant]
     Active Substance: CHOLESTYRAMINE
  19. ESTRADIOL [Concomitant]
     Active Substance: ESTRADIOL
  20. Polysporin complete [Concomitant]
  21. Gravol ginger/gingembre [Concomitant]
  22. CLONIDINE [Concomitant]
     Active Substance: CLONIDINE
  23. FIRAZYR [Concomitant]
     Active Substance: ICATIBANT ACETATE
  24. HYDROCHLOROTHIAZIDE [Concomitant]
     Active Substance: HYDROCHLOROTHIAZIDE

REACTIONS (10)
  - Plasma cell myeloma [Not Recovered/Not Resolved]
  - COVID-19 [Not Recovered/Not Resolved]
  - Cataract [Unknown]
  - Stomatitis [Not Recovered/Not Resolved]
  - Oral herpes [Unknown]
  - Renal disorder [Unknown]
  - Injection site mass [Recovering/Resolving]
  - Rash [Unknown]
  - Injection site bruising [Recovered/Resolved]
  - Post-acute COVID-19 syndrome [Not Recovered/Not Resolved]

NARRATIVE: CASE EVENT DATE: 20240101
